FAERS Safety Report 12369495 (Version 1)
Quarter: 2016Q2

REPORT INFORMATION
  Report Type: Spontaneous
  Country: US (occurrence: None)
  Receive Date: 20160513
  Receipt Date: 20160513
  Transmission Date: 20160815
  Serious: No
  Sender: FDA-Public Use
  Company Number: None

PATIENT
  Age: 43 Year
  Sex: Male

DRUGS (2)
  1. REBIF [Suspect]
     Active Substance: INTERFERON BETA-1A
     Indication: MULTIPLE SCLEROSIS
     Route: 058
     Dates: start: 201506
  2. IBU [Concomitant]
     Active Substance: IBUPROFEN

REACTIONS (2)
  - Fatigue [None]
  - Influenza like illness [None]

NARRATIVE: CASE EVENT DATE: 201603
